FAERS Safety Report 12641667 (Version 2)
Quarter: 2016Q3

REPORT INFORMATION
  Report Type: Report from Study
  Country: TR (occurrence: TR)
  Receive Date: 20160810
  Receipt Date: 20160812
  Transmission Date: 20161109
  Serious: Yes (Death)
  Sender: FDA-Public Use
  Company Number: TR-PFIZER INC-2016346829

PATIENT
  Age: 58 Year
  Sex: Male
  Weight: 64 kg

DRUGS (6)
  1. DOCETAXEL. [Suspect]
     Active Substance: DOCETAXEL
     Indication: NON-SMALL CELL LUNG CANCER
     Dosage: 124 MG, EVERY 3 WEEKS
     Route: 042
     Dates: start: 20160509, end: 20160621
  2. NORODOL [Concomitant]
     Indication: DEPRESSION
     Dosage: 20 ML, 3X/DAY (5 DROPS )
     Route: 048
     Dates: start: 20160610, end: 20160701
  3. MEGACE [Concomitant]
     Active Substance: MEGESTROL ACETATE
     Indication: WEIGHT DECREASED
     Dosage: 160 MG, 1X/DAY
     Route: 048
     Dates: start: 20160609, end: 20160701
  4. CIPROFLOXACIN. [Concomitant]
     Active Substance: CIPROFLOXACIN
     Indication: URINARY TRACT INFECTION
     Dosage: 500 MG, 2X/DAY
     Route: 048
     Dates: start: 20160530, end: 20160701
  5. DUOLANS [Concomitant]
     Indication: GASTRITIS PROPHYLAXIS
     Dosage: 30 MG, 1X/DAY
     Route: 048
     Dates: start: 20160607, end: 20160701
  6. CITOLES [Concomitant]
     Indication: DEPRESSION
     Dosage: 10 MG/ML, DAILY (10 DROPS )
     Route: 048
     Dates: start: 20160610, end: 20160701

REACTIONS (1)
  - Respiratory failure [Fatal]

NARRATIVE: CASE EVENT DATE: 20160701
